FAERS Safety Report 7515447-4 (Version None)
Quarter: 2011Q2

REPORT INFORMATION
  Report Type: 
  Country: None (occurrence: None)
  Receive Date: 20110601
  Receipt Date: 20110527
  Transmission Date: 20111010
  Serious: Yes (Hospitalization)
  Sender: FDA-Public Use
  Company Number: JP-BRISTOL-MYERS SQUIBB COMPANY-15338494

PATIENT
  Age: 58 Year
  Sex: Male

DRUGS (4)
  1. IRBESARTAN [Suspect]
     Route: 048
     Dates: start: 20100501
  2. ATENOLOL [Suspect]
     Dates: start: 20100501
  3. AZELNIDIPINE [Suspect]
     Dates: start: 20100501
  4. NIFEDIPINE [Suspect]
     Dates: start: 20100501

REACTIONS (5)
  - OVERDOSE [None]
  - SUICIDE ATTEMPT [None]
  - SHOCK [None]
  - DEPRESSED LEVEL OF CONSCIOUSNESS [None]
  - NAUSEA [None]
